FAERS Safety Report 11524353 (Version 1)
Quarter: 2015Q3

REPORT INFORMATION
  Report Type: Spontaneous
  Country: US (occurrence: US)
  Receive Date: 20150903
  Receipt Date: 20150903
  Transmission Date: 20151125
  Serious: No
  Sender: FDA-Public Use
  Company Number: US-ELI_LILLY_AND_COMPANY-US201305009354

PATIENT
  Sex: Male

DRUGS (2)
  1. CYMBALTA [Suspect]
     Active Substance: DULOXETINE HYDROCHLORIDE
     Dosage: 60 MG, QD
     Dates: start: 20130515
  2. CYMBALTA [Suspect]
     Active Substance: DULOXETINE HYDROCHLORIDE
     Indication: ANXIETY
     Dosage: 30 MG, QD
     Dates: start: 20130501, end: 20130514

REACTIONS (7)
  - Hallucination, auditory [Unknown]
  - Paradoxical drug reaction [Unknown]
  - Amnesia [Unknown]
  - Aggression [Unknown]
  - Mood altered [Unknown]
  - Anxiety [Unknown]
  - Intentional product misuse [Unknown]
